FAERS Safety Report 5277928-6 (Version None)
Quarter: 2007Q1

REPORT INFORMATION
  Report Type: 
  Country: None (occurrence: None)
  Receive Date: 20070321
  Receipt Date: 20070113
  Transmission Date: 20070707
  Serious: Yes (Hospitalization)
  Sender: FDA-Public Use
  Company Number: COMP07-0002

PATIENT
  Age: 55 Year
  Sex: Female
  Weight: 74.3899 kg

DRUGS (2)
  1. OXYMORPHONE HCL ER 40 MG TABLET, ABRIKA PHARM. INC. [Suspect]
     Indication: INVESTIGATION
     Dosage: 40 MG, QID 1 DAY, ORAL ONE DOSE
     Route: 048
     Dates: start: 20070113
  2. NALTREXONE HCI 50 MG TABLET, BARR LABS [Suspect]
     Indication: INVESTIGATION
     Dosage: 50 MG, BID 2 DAYS, ORAL
     Route: 048
     Dates: start: 20070112, end: 20070113

REACTIONS (3)
  - ATRIAL FIBRILLATION [None]
  - SUPRAVENTRICULAR EXTRASYSTOLES [None]
  - VENTRICULAR EXTRASYSTOLES [None]
